FAERS Safety Report 6157573-0 (Version None)
Quarter: 2009Q2

REPORT INFORMATION
  Report Type: 
  Country: None (occurrence: None)
  Receive Date: 20090416
  Receipt Date: 20090409
  Transmission Date: 20091009
  Serious: Yes (Other)
  Sender: FDA-Public Use
  Company Number: AU-ABBOTT-09P-008-0567164-00

PATIENT
  Sex: Female

DRUGS (5)
  1. HUMIRA [Suspect]
     Indication: PSORIASIS
     Dosage: TWO INJECTIONS
     Dates: start: 20090306, end: 20090306
  2. HUMIRA [Suspect]
     Dosage: ONE INJECTION
     Dates: start: 20090313, end: 20090313
  3. HUMIRA [Suspect]
     Dosage: ONE INJECTION
     Dates: start: 20090327, end: 20090327
  4. ATACAND [Concomitant]
     Indication: DRUG USE FOR UNKNOWN INDICATION
  5. ATIVAN [Concomitant]
     Indication: DRUG USE FOR UNKNOWN INDICATION

REACTIONS (6)
  - HEAD DISCOMFORT [None]
  - HEADACHE [None]
  - MIGRAINE [None]
  - NAUSEA [None]
  - PALPITATIONS [None]
  - URTICARIA [None]
